FAERS Safety Report 8577235-X (Version None)
Quarter: 2012Q3

REPORT INFORMATION
  Report Type: 
  Country: None (occurrence: None)
  Receive Date: 20120807
  Receipt Date: 20120730
  Transmission Date: 20120928
  Serious: Yes (Hospitalization, Other)
  Sender: FDA-Public Use
  Company Number: US-009507513-1203USA01846

PATIENT

DRUGS (6)
  1. HORMONES (UNSPECIFIED) [Concomitant]
     Dates: start: 19800101, end: 20100101
  2. PEPCID [Concomitant]
     Indication: GASTROOESOPHAGEAL REFLUX DISEASE
     Dosage: UNK, BID
  3. FOSAMAX [Suspect]
     Dosage: UNK
     Route: 048
  4. PRILOSEC [Concomitant]
     Indication: BARRETT'S OESOPHAGUS
  5. FOSAMAX [Suspect]
     Indication: OSTEOPOROSIS
     Dosage: 70 MG, QW
     Route: 048
     Dates: end: 20100901
  6. PRILOSEC [Concomitant]
     Indication: GASTROOESOPHAGEAL REFLUX DISEASE
     Dates: start: 19930101, end: 19980101

REACTIONS (13)
  - GASTROOESOPHAGEAL REFLUX DISEASE [None]
  - ANXIETY [None]
  - HYPERTENSION [None]
  - DYSPHAGIA [None]
  - EMOTIONAL DISTRESS [None]
  - GASTRITIS [None]
  - FEMUR FRACTURE [None]
  - BLOOD CHOLESTEROL INCREASED [None]
  - OESOPHAGITIS [None]
  - QUALITY OF LIFE DECREASED [None]
  - WEIGHT DECREASED [None]
  - ASTHMA [None]
  - DEPRESSION [None]
